FAERS Safety Report 4398128-8 (Version None)
Quarter: 2004Q3

REPORT INFORMATION
  Report Type: 
  Country: None (occurrence: None)
  Receive Date: 20040713
  Receipt Date: 20040630
  Transmission Date: 20050211
  Serious: Yes (Hospitalization)
  Sender: FDA-Public Use
  Company Number: 2004042462

PATIENT
  Age: 46 Year
  Sex: Male

DRUGS (3)
  1. SORTIS (ATORVASTATIN) [Suspect]
     Indication: HYPERCHOLESTEROLAEMIA
     Dosage: 80 MG (1 IN 1 D), ORAL
     Route: 048
  2. CANDESARTAN CILEXETIL (CANDESARTAN CILEXETIL) [Concomitant]
  3. BISOPROLOL FUMARATE [Concomitant]

REACTIONS (1)
  - MUSCLE RUPTURE [None]
